FAERS Safety Report 6782122-3 (Version None)
Quarter: 2010Q2

REPORT INFORMATION
  Report Type: 
  Country: None (occurrence: None)
  Receive Date: 20100621
  Receipt Date: 20100615
  Transmission Date: 20101027
  Serious: Yes (Hospitalization)
  Sender: FDA-Public Use
  Company Number: CA-MERCK-1006USA02506

PATIENT
  Sex: Female
  Weight: 66 kg

DRUGS (10)
  1. JANUVIA [Suspect]
     Route: 048
  2. ACCUPRIL [Concomitant]
     Route: 065
  3. ALDACTONE [Concomitant]
     Route: 065
  4. CRESTOR [Concomitant]
     Route: 065
  5. DIOVAN [Concomitant]
     Route: 065
  6. GLUCONORM (GLYBURIDE) [Concomitant]
     Route: 065
  7. LASIX [Concomitant]
     Route: 065
  8. METFORMIN [Concomitant]
     Route: 065
  9. METOPROLOL [Concomitant]
     Route: 065
  10. PANTOPRAZOLE [Concomitant]
     Route: 065

REACTIONS (5)
  - CONDITION AGGRAVATED [None]
  - DEHYDRATION [None]
  - LIPASE INCREASED [None]
  - RENAL FAILURE [None]
  - VOMITING [None]
